FAERS Safety Report 15691044 (Version 2)
Quarter: 2019Q2

REPORT INFORMATION
  Report Type: Spontaneous
  Country: US (occurrence: US)
  Receive Date: 20181205
  Receipt Date: 20190510
  Transmission Date: 20190711
  Serious: Yes (Other)
  Sender: FDA-Public Use
  Company Number: US-ASTRAZENECA-2018SF55778

PATIENT
  Age: 72 Year
  Sex: Female
  Weight: 99.8 kg

DRUGS (26)
  1. OMEPRAZOLE. [Suspect]
     Active Substance: OMEPRAZOLE
     Indication: GASTROOESOPHAGEAL REFLUX DISEASE
     Route: 065
     Dates: start: 201603, end: 201610
  2. METFORMIN [Concomitant]
     Active Substance: METFORMIN HYDROCHLORIDE
  3. VALSARTAN. [Concomitant]
     Active Substance: VALSARTAN
  4. DIOVAN [Concomitant]
     Active Substance: VALSARTAN
  5. LEVEMIR [Concomitant]
     Active Substance: INSULIN DETEMIR
  6. NEXIUM [Suspect]
     Active Substance: ESOMEPRAZOLE MAGNESIUM
     Indication: GASTROOESOPHAGEAL REFLUX DISEASE
     Route: 048
     Dates: start: 2009, end: 2015
  7. NEXIUM [Suspect]
     Active Substance: ESOMEPRAZOLE MAGNESIUM
     Indication: GASTROOESOPHAGEAL REFLUX DISEASE
     Route: 048
     Dates: start: 201001, end: 201007
  8. NEXIUM [Suspect]
     Active Substance: ESOMEPRAZOLE MAGNESIUM
     Indication: GASTROOESOPHAGEAL REFLUX DISEASE
     Route: 048
     Dates: start: 201204, end: 201501
  9. ATORVASTATIN [Concomitant]
     Active Substance: ATORVASTATIN
  10. AMITRIPTYLINE [Concomitant]
     Active Substance: AMITRIPTYLINE
  11. PIOGLITAZONE. [Concomitant]
     Active Substance: PIOGLITAZONE
  12. FLUOXETINE [Concomitant]
     Active Substance: FLUOXETINE HYDROCHLORIDE
  13. CRESTOR [Concomitant]
     Active Substance: ROSUVASTATIN CALCIUM
  14. CIPROFLOXACIN. [Concomitant]
     Active Substance: CIPROFLOXACIN
  15. TYLENOL [Concomitant]
     Active Substance: ACETAMINOPHEN
  16. VESICARE [Concomitant]
     Active Substance: SOLIFENACIN SUCCINATE
  17. NEXIUM [Suspect]
     Active Substance: ESOMEPRAZOLE MAGNESIUM
     Indication: GASTROOESOPHAGEAL REFLUX DISEASE
     Route: 048
     Dates: start: 200908, end: 200911
  18. NEXIUM [Suspect]
     Active Substance: ESOMEPRAZOLE MAGNESIUM
     Indication: GASTROOESOPHAGEAL REFLUX DISEASE
     Route: 048
     Dates: start: 201010, end: 201203
  19. GABAPENTIN. [Concomitant]
     Active Substance: GABAPENTIN
  20. NOVOLOG [Concomitant]
     Active Substance: INSULIN ASPART
  21. ASPIRIN. [Concomitant]
     Active Substance: ASPIRIN
  22. GLIPIZIDE. [Concomitant]
     Active Substance: GLIPIZIDE
  23. JANUMET [Concomitant]
     Active Substance: METFORMIN HYDROCHLORIDE\SITAGLIPTIN PHOSPHATE
  24. OMEPRAZOLE. [Suspect]
     Active Substance: OMEPRAZOLE
     Indication: GASTROOESOPHAGEAL REFLUX DISEASE
     Route: 065
     Dates: start: 201610, end: 201709
  25. METOPROLOL. [Concomitant]
     Active Substance: METOPROLOL
  26. PIROXICAM. [Concomitant]
     Active Substance: PIROXICAM

REACTIONS (2)
  - Acute kidney injury [Not Recovered/Not Resolved]
  - Chronic kidney disease [Not Recovered/Not Resolved]

NARRATIVE: CASE EVENT DATE: 2016
